FAERS Safety Report 8440678-9 (Version None)
Quarter: 2012Q2

REPORT INFORMATION
  Report Type: 
  Country: None (occurrence: None)
  Receive Date: 20120615
  Receipt Date: 20120606
  Transmission Date: 20120825
  Serious: Yes (Hospitalization, Other)
  Sender: FDA-Public Use
  Company Number: US-BAYER-2012-042994

PATIENT
  Age: 42 Year
  Sex: Female
  Weight: 56.689 kg

DRUGS (18)
  1. LAMICTAL [Concomitant]
     Indication: BIPOLAR DISORDER
     Dosage: 200 MG Q HS
  2. XANAX [Concomitant]
     Indication: ANXIETY
     Dosage: 0.5 MG, TID PRN
  3. BUSPIRONE HCL [Concomitant]
     Dosage: 5 MG, UNK
  4. SEROQUEL [Concomitant]
     Indication: BIPOLAR DISORDER
     Dosage: 75MG QHS
  5. FLOMAX [Concomitant]
  6. PREVACID [Concomitant]
     Indication: GASTROOESOPHAGEAL REFLUX DISEASE
     Dosage: 30 MG, UNK
  7. YASMIN [Suspect]
  8. ADVAIR DISKUS 100/50 [Concomitant]
     Dosage: 250/50 1 PUFF , BID
  9. VICODIN [Concomitant]
  10. YASMIN [Suspect]
     Indication: CONTRACEPTION
     Dosage: UNK
     Dates: start: 20090126, end: 20100520
  11. PEPCID [Concomitant]
     Dosage: 20 MG Q HS
  12. SINGULAIR [Concomitant]
     Dosage: 10 MG DAILY
  13. LEVOTHYROXINE SODIUM [Concomitant]
     Indication: HYPOTHYROIDISM
     Dosage: 0.25 MCG/24HR, UNK
     Dates: start: 19900101
  14. ALBUTEROL [Concomitant]
     Indication: WHEEZING
     Dosage: 2 PUFF Q 4-6 H PRN
  15. BENADRYL [Concomitant]
  16. YASMIN [Suspect]
     Indication: PREMENSTRUAL SYNDROME
  17. TOPIRAMATE [Concomitant]
     Dosage: 25 MG, UNK
  18. SEROQUEL [Concomitant]
     Dosage: 100 MG, HS

REACTIONS (9)
  - PULMONARY EMBOLISM [None]
  - PAIN [None]
  - PAIN IN EXTREMITY [None]
  - INJURY [None]
  - DEEP VEIN THROMBOSIS [None]
  - CHEST PAIN [None]
  - CHOLELITHIASIS [None]
  - NEPHROLITHIASIS [None]
  - THROMBOSIS [None]
